FAERS Safety Report 10666935 (Version 2)
Quarter: 2015Q1

REPORT INFORMATION
  Report Type: Spontaneous
  Country: US (occurrence: US)
  Receive Date: 20141222
  Receipt Date: 20150211
  Transmission Date: 20150720
  Serious: Yes (Hospitalization)
  Sender: FDA-Public Use
  Company Number: US-BIOGENIDEC-2014BI134148

PATIENT
  Age: 66 Year
  Sex: Female

DRUGS (15)
  1. ESCITALOPRAM OXALATE. [Concomitant]
     Active Substance: ESCITALOPRAM OXALATE
  2. AMITRIPTYLINE HCL [Concomitant]
     Active Substance: AMITRIPTYLINE
  3. FOLIC ACID. [Concomitant]
     Active Substance: FOLIC ACID
  4. ALPRAZOLAM. [Concomitant]
     Active Substance: ALPRAZOLAM
  5. AVONEX [Suspect]
     Active Substance: INTERFERON BETA-1A
     Indication: MULTIPLE SCLEROSIS
     Route: 030
     Dates: start: 20110425
  6. B6 NATURAL [Concomitant]
  7. CALCIUM D [Concomitant]
     Active Substance: CALCIUM\VITAMIN D
  8. LASIX [Concomitant]
     Active Substance: FUROSEMIDE
  9. B12-ACTIVE [Concomitant]
  10. SEROQUEL XR [Concomitant]
     Active Substance: QUETIAPINE FUMARATE
  11. OMEPRAZOLE. [Concomitant]
     Active Substance: OMEPRAZOLE
  12. MIDODRINE HCL [Concomitant]
     Active Substance: MIDODRINE HYDROCHLORIDE
  13. SIMVASTATIN. [Concomitant]
     Active Substance: SIMVASTATIN
  14. POTASSIUM [Concomitant]
     Active Substance: POTASSIUM
  15. BI NATURAL [Concomitant]

REACTIONS (1)
  - Multiple sclerosis [Unknown]
